FAERS Safety Report 9552176 (Version 1)
Quarter: 2013Q3

REPORT INFORMATION
  Report Type: Report from Study
  Country: US (occurrence: US)
  Receive Date: 20130925
  Receipt Date: 20130925
  Transmission Date: 20140515
  Serious: Yes (Other)
  Sender: FDA-Public Use
  Company Number: PHEH2013US020017

PATIENT
  Age: 59 Year
  Sex: Female

DRUGS (1)
  1. EXELON PATCH [Suspect]
     Dosage: 13.3 MG, DAILY
     Route: 062

REACTIONS (3)
  - Neoplasm malignant [Recovering/Resolving]
  - Atrophy [Recovering/Resolving]
  - Asthenia [Recovering/Resolving]
